FAERS Safety Report 11203357 (Version 2)
Quarter: 2015Q4

REPORT INFORMATION
  Report Type: Spontaneous
  Country: US (occurrence: US)
  Receive Date: 20150619
  Receipt Date: 20151208
  Transmission Date: 20160304
  Serious: No
  Sender: FDA-Public Use
  Company Number: US-GLAXOSMITHKLINE-US2015085580

PATIENT
  Sex: Female

DRUGS (4)
  1. FOSAMAX [Concomitant]
     Active Substance: ALENDRONATE SODIUM
  2. ADVAIR DISKUS [Suspect]
     Active Substance: FLUTICASONE PROPIONATE\SALMETEROL XINAFOATE
     Indication: ASTHMA
     Dosage: 100/50, 1 PUFF(S), BID
     Route: 055
     Dates: start: 1997
  3. ADVAIR DISKUS [Suspect]
     Active Substance: FLUTICASONE PROPIONATE\SALMETEROL XINAFOATE
     Indication: CHRONIC OBSTRUCTIVE PULMONARY DISEASE
     Dosage: 250/50 UG UNK
     Route: 055
  4. LOPRESSOR [Concomitant]
     Active Substance: METOPROLOL TARTRATE

REACTIONS (14)
  - Asthma [Recovered/Resolved]
  - Drug ineffective [Recovered/Resolved]
  - Headache [Recovered/Resolved]
  - Burning sensation mucosal [Unknown]
  - Medication residue present [Unknown]
  - Panic reaction [Recovered/Resolved]
  - Therapeutic response unexpected [Unknown]
  - Increased appetite [Recovered/Resolved]
  - Nasopharyngitis [Unknown]
  - Nasal congestion [Unknown]
  - Dizziness [Recovered/Resolved]
  - Intentional product use issue [Unknown]
  - Device use error [Unknown]
  - Tremor [Recovered/Resolved]

NARRATIVE: CASE EVENT DATE: 201408
